FAERS Safety Report 4892263-3 (Version None)
Quarter: 2006Q1

REPORT INFORMATION
  Report Type: 
  Country: None (occurrence: None)
  Receive Date: 20060126
  Receipt Date: 20060119
  Transmission Date: 20060701
  Serious: Yes (Death)
  Sender: FDA-Public Use
  Company Number: US-JNJFOC-20060104369

PATIENT
  Sex: Female

DRUGS (17)
  1. INFLIXIMAB [Suspect]
     Indication: RHEUMATOID ARTHRITIS
     Route: 042
  2. BEXTRA [Concomitant]
  3. FOLTEX [Concomitant]
  4. DEMADEX [Concomitant]
  5. K-DUR 10 [Concomitant]
  6. LIPITOR [Concomitant]
  7. LANOXIN [Concomitant]
  8. PREMARIN [Concomitant]
  9. METHOCARBOMAL [Concomitant]
  10. SOMA [Concomitant]
  11. DESYREL [Concomitant]
  12. XANAX [Concomitant]
  13. ATARAX [Concomitant]
  14. QUININE SULFATE [Concomitant]
  15. ZANTAC [Concomitant]
  16. DARVOCET [Concomitant]
  17. DARVOCET [Concomitant]
     Dosage: 100/650, 3 TABS DAILY

REACTIONS (1)
  - LUNG NEOPLASM MALIGNANT [None]
